FAERS Safety Report 6306445-7 (Version None)
Quarter: 2009Q3

REPORT INFORMATION
  Report Type: 
  Country: None (occurrence: None)
  Receive Date: 20090812
  Receipt Date: 20090805
  Transmission Date: 20100115
  Serious: Yes (Other)
  Sender: FDA-Public Use
  Company Number: US-BAXTER-2009BH009573

PATIENT
  Age: 37 Year
  Sex: Female

DRUGS (3)
  1. CHLORPROMAZINE [Suspect]
     Indication: MIGRAINE
     Route: 030
     Dates: start: 20090417, end: 20090417
  2. PROMETHAZINE [Suspect]
     Indication: MIGRAINE
     Route: 030
     Dates: start: 20090417, end: 20090417
  3. VITAMIN B12 FOR INJECTION [Concomitant]
     Indication: DRUG USE FOR UNKNOWN INDICATION
     Route: 030
     Dates: start: 20090417, end: 20090511

REACTIONS (10)
  - CELLULITIS [None]
  - INJECTION SITE ABSCESS [None]
  - INJECTION SITE ANAESTHESIA [None]
  - INJECTION SITE CELLULITIS [None]
  - INJECTION SITE INDURATION [None]
  - INJECTION SITE PAIN [None]
  - INJECTION SITE PUSTULE [None]
  - INJECTION SITE REACTION [None]
  - SKIN NECROSIS [None]
  - WOUND [None]
